FAERS Safety Report 4847950-X (Version None)
Quarter: 2005Q4

REPORT INFORMATION
  Report Type: 
  Country: None (occurrence: None)
  Receive Date: 20051206
  Receipt Date: 20051122
  Transmission Date: 20060501
  Serious: Yes (Hospitalization)
  Sender: FDA-Public Use
  Company Number: EM2005-0637

PATIENT
  Age: 44 Year
  Sex: Female
  Weight: 127 kg

DRUGS (10)
  1. PROLEUKIN [Suspect]
     Indication: METASTATIC MALIGNANT MELANOMA
     Dosage: 78 MIU, Q8H, IV
     Route: 042
     Dates: start: 20051107, end: 20051111
  2. DECITABINE (DECITABINE) [Suspect]
     Indication: METASTATIC MALIGNANT MELANOMA
     Dosage: 19.5 MG, QD, SUBCUTAN.
     Route: 058
     Dates: start: 20051024, end: 20051104
  3. ACETAMINOPHEN [Concomitant]
  4. INDOMETHACIN [Concomitant]
  5. RANITIDINE [Concomitant]
  6. ONDANSETRON [Concomitant]
  7. IMODIUM [Concomitant]
  8. NYSTATIN [Concomitant]
  9. LASIX [Concomitant]
  10. CIPRO [Concomitant]

REACTIONS (5)
  - CELLULITIS [None]
  - NEUTROPENIC INFECTION [None]
  - PNEUMONIA [None]
  - SKIN ULCER [None]
  - STAPHYLOCOCCAL SEPSIS [None]
